FAERS Safety Report 10608363 (Version 1)
Quarter: 2014Q4

REPORT INFORMATION
  Report Type: Spontaneous
  Country: US (occurrence: US)
  Receive Date: 20141125
  Receipt Date: 20141125
  Transmission Date: 20150529
  Serious: No
  Sender: FDA-Public Use
  Company Number: US-009507513-1411USA001052

PATIENT
  Age: 18 Year
  Sex: Female
  Weight: 91.61 kg

DRUGS (3)
  1. NEXPLANON [Suspect]
     Active Substance: ETONOGESTREL
     Indication: CONTRACEPTION
     Dosage: 68 MG
     Route: 059
     Dates: start: 20140514
  2. BIOTIN [Concomitant]
     Active Substance: BIOTIN
  3. VITAMINS (UNSPECIFIED) [Concomitant]
     Active Substance: VITAMINS

REACTIONS (7)
  - Implant site bruising [Unknown]
  - Implant site discolouration [Unknown]
  - Implant site erythema [Unknown]
  - Ovarian cyst [Unknown]
  - Device deployment issue [Recovered/Resolved]
  - Pelvic pain [Unknown]
  - Device difficult to use [Recovered/Resolved]

NARRATIVE: CASE EVENT DATE: 2014
